FAERS Safety Report 7371952-5 (Version None)
Quarter: 2011Q1

REPORT INFORMATION
  Report Type: 
  Country: None (occurrence: None)
  Receive Date: 20110315
  Receipt Date: 20110307
  Transmission Date: 20110831
  Serious: Yes (Congenital Anomaly, Other)
  Sender: FDA-Public Use
  Company Number: 2011SP004168

PATIENT
  Age: 0 Day
  Sex: Female

DRUGS (1)
  1. IMPLANON [Suspect]
     Indication: PREGNANCY
     Dosage: TRPL

REACTIONS (2)
  - PREGNANCY WITH IMPLANT CONTRACEPTIVE [None]
  - DRUG EXPOSURE DURING PREGNANCY [None]
